FAERS Safety Report 15254489 (Version 2)
Quarter: 2018Q3

REPORT INFORMATION
  Report Type: Spontaneous
  Country: US (occurrence: US)
  Receive Date: 20180808
  Receipt Date: 20180921
  Transmission Date: 20181010
  Serious: No
  Sender: FDA-Public Use
  Company Number: US-BIOGEN-2018BI00618311

PATIENT
  Age: 62 Year
  Sex: Female

DRUGS (1)
  1. TECFIDERA [Suspect]
     Active Substance: DIMETHYL FUMARATE
     Indication: MULTIPLE SCLEROSIS
     Route: 065
     Dates: start: 20180725

REACTIONS (4)
  - Frequent bowel movements [Not Recovered/Not Resolved]
  - Flushing [Unknown]
  - Anal incontinence [Unknown]
  - Fatigue [Unknown]

NARRATIVE: CASE EVENT DATE: 201807
